FAERS Safety Report 9210129 (Version 2)
Quarter: 2013Q2

REPORT INFORMATION
  Report Type: Spontaneous
  Country: US (occurrence: US)
  Receive Date: 20130404
  Receipt Date: 20130605
  Transmission Date: 20140414
  Serious: Yes (Hospitalization)
  Sender: FDA-Public Use
  Company Number: US-JNJFOC-20130316531

PATIENT
  Age: 57 Year
  Sex: Male
  Weight: 96 kg

DRUGS (20)
  1. REMICADE [Suspect]
     Indication: CROHN^S DISEASE
     Route: 042
     Dates: end: 201212
  2. REMICADE [Suspect]
     Indication: CROHN^S DISEASE
     Route: 042
     Dates: end: 201208
  3. REMICADE [Suspect]
     Indication: CROHN^S DISEASE
     Route: 042
     Dates: start: 20120127
  4. TYLENOL [Concomitant]
     Route: 065
  5. XALATAN [Concomitant]
     Dosage: AT BED TIME
     Route: 065
  6. ACCUPRIL [Concomitant]
     Dosage: 20 (UNITS UNSPECIFIED)
     Route: 065
  7. ACTOS [Concomitant]
     Dosage: 15 (UNITS UNSPECIFIED)
     Route: 065
  8. ALLOPURINOL [Concomitant]
     Dosage: 300 (UNITS UNSPECIFIED)
     Route: 065
  9. COREG [Concomitant]
     Route: 065
  10. CYMBALTA [Concomitant]
     Dosage: 60 MG Q D AM??30 MG Q D PM
     Route: 065
  11. HUMALOG [Concomitant]
     Dosage: 100 U / ML SLIDING SCALE
     Route: 065
  12. KLONOPIN [Concomitant]
     Dosage: 1/2 BID
     Route: 065
  13. LASIX [Concomitant]
     Dosage: 20 (UNITS UNSPECIFIED)
     Route: 065
  14. LOMOTIL [Concomitant]
     Dosage: 2.5-0.025 MG
     Route: 065
  15. MVI [Concomitant]
     Route: 065
  16. NPH INSULIN [Concomitant]
     Dosage: 100 U
     Route: 065
  17. OXYCONTIN [Concomitant]
     Dosage: 80 (UNITS UNSPECIFIED)
     Route: 065
  18. SEROQUEL XR [Concomitant]
     Dosage: 50 MG 1-3 AT HS
     Route: 065
  19. SKELAXIN [Concomitant]
     Dosage: AT HS
     Route: 065
  20. TRICOR [Concomitant]
     Dosage: AT HS
     Route: 065

REACTIONS (1)
  - Cerebrovascular accident [Recovered/Resolved with Sequelae]
